FAERS Safety Report 9238788 (Version 1)
Quarter: 2013Q1

REPORT INFORMATION
  Report Type: Spontaneous
  Country: US (occurrence: None)
  Receive Date: 20121113
  Receipt Date: 20121113
  Transmission Date: 20140127
  Serious: Yes (Other)
  Sender: FDA-Public Use
  Company Number: PHEH2012US002107

PATIENT
  Sex: Male

DRUGS (5)
  1. TRILEPTAL [Suspect]
  2. OXCARBAZEPINE [Suspect]
  3. DIAZEPAN (ASPARAGINE, DIAZEPAM, LEVOGLUTAMIDE, PYRIDOXINE, SERINE PHOSPHATE, THIAMINE) [Concomitant]
  4. FLUOXETINE (FLUOXETINE) [Concomitant]
  5. XANAX (ALPRAZOLAM) [Concomitant]

REACTIONS (8)
  - Petit mal epilepsy [None]
  - Grand mal convulsion [None]
  - Migraine [None]
  - Hearing impaired [None]
  - Gastric disorder [None]
  - Somnolence [None]
  - Fatigue [None]
  - Vomiting [None]
